FAERS Safety Report 9676315 (Version 2)
Quarter: 2013Q4

REPORT INFORMATION
  Report Type: Spontaneous
  Country: JP (occurrence: JP)
  Receive Date: 20131107
  Receipt Date: 20131126
  Transmission Date: 20140711
  Serious: Yes (Other)
  Sender: FDA-Public Use
  Company Number: JP-BAXTER-2013BAX043487

PATIENT
  Sex: Female

DRUGS (5)
  1. ENDOXAN 1G [Suspect]
     Indication: B-CELL LYMPHOMA
  2. DOXORUBICIN [Suspect]
     Indication: B-CELL LYMPHOMA
     Route: 065
  3. VINCRISTINE [Suspect]
     Indication: B-CELL LYMPHOMA
     Route: 065
  4. PREDNISOLONE [Suspect]
     Indication: B-CELL LYMPHOMA
     Route: 065
  5. RITUXIMAB [Suspect]
     Indication: B-CELL LYMPHOMA
     Route: 065

REACTIONS (1)
  - Small intestinal perforation [Recovering/Resolving]
